FAERS Safety Report 7389657-3 (Version None)
Quarter: 2011Q2

REPORT INFORMATION
  Report Type: 
  Country: None (occurrence: None)
  Receive Date: 20110401
  Receipt Date: 20110328
  Transmission Date: 20111010
  Serious: Yes (Other)
  Sender: FDA-Public Use
  Company Number: JP-PFIZER INC-2011040945

PATIENT
  Age: 67 Year
  Sex: Male
  Weight: 40 kg

DRUGS (15)
  1. LYRICA [Suspect]
     Indication: PAIN
     Dosage: 75 MG, 1X/DAY
     Route: 048
     Dates: start: 20110216, end: 20110217
  2. FLUNITRAZEPAM [Concomitant]
     Dosage: 2 MG, 1X/DAY
     Route: 048
  3. CYMBALTA [Concomitant]
     Dosage: 40 MG, 2X/DAY
     Route: 048
  4. ALLEGRA [Concomitant]
     Dosage: 60 MG, 2X/DAY
     Route: 048
  5. AMLODIPINE [Concomitant]
     Dosage: 5 MG, 1X/DAY
     Route: 048
  6. MAGNESIUM OXIDE [Concomitant]
     Dosage: 330 MG, 3X/DAY
     Route: 048
  7. SEROQUEL [Concomitant]
     Dosage: 100 MG, 1X/DAY
     Route: 048
  8. URSO 250 [Concomitant]
     Dosage: 200 MG, 3X/DAY
     Route: 048
  9. ALEVIATIN [Concomitant]
     Dosage: 100 MG, 2X/DAY
     Route: 048
  10. VALSARTAN [Concomitant]
     Dosage: 80 MG, 1X/DAY
     Route: 048
  11. INDOMETHACIN SODIUM [Concomitant]
     Indication: PAIN
     Dosage: UNK
     Route: 062
  12. BENZALIN [Concomitant]
     Dosage: 5 MG, 1X/DAY
     Route: 048
  13. TAKEPRON [Concomitant]
     Dosage: 15 MG, 1X/DAY
     Route: 048
  14. VOLTAREN [Concomitant]
     Indication: PAIN
     Dosage: UNK
     Route: 054
  15. LASIX [Concomitant]
     Dosage: 20 MG, 1X/DAY
     Route: 048

REACTIONS (3)
  - SPEECH DISORDER [None]
  - DIZZINESS [None]
  - MUSCULOSKELETAL STIFFNESS [None]
